FAERS Safety Report 23966415 (Version 8)
Quarter: 2025Q2

REPORT INFORMATION
  Report Type: Spontaneous
  Country: US (occurrence: US)
  Receive Date: 20240612
  Receipt Date: 20250624
  Transmission Date: 20250717
  Serious: Yes (Other)
  Sender: PFIZER
  Company Number: US-PFIZER INC-PV202400075579

PATIENT
  Age: 63 Year
  Sex: Female

DRUGS (11)
  1. IBRANCE [Suspect]
     Active Substance: PALBOCICLIB
     Indication: Breast cancer female
     Dates: start: 20240118, end: 20240922
  2. IBRANCE [Suspect]
     Active Substance: PALBOCICLIB
     Route: 048
     Dates: start: 20240121, end: 20240601
  3. IBRANCE [Suspect]
     Active Substance: PALBOCICLIB
     Dosage: 100 MG BY MOUTH DAILY
     Route: 048
     Dates: start: 20240928, end: 20250210
  4. IBRANCE [Suspect]
     Active Substance: PALBOCICLIB
     Dates: start: 2025
  5. IBRANCE [Suspect]
     Active Substance: PALBOCICLIB
     Route: 048
     Dates: start: 20250218, end: 202506
  6. ALBUTEROL SULFATE [Concomitant]
     Active Substance: ALBUTEROL SULFATE
  7. EXEMESTANE [Concomitant]
     Active Substance: EXEMESTANE
  8. EZETIMIBE [Concomitant]
     Active Substance: EZETIMIBE
  9. JANUMET [Concomitant]
     Active Substance: METFORMIN HYDROCHLORIDE\SITAGLIPTIN PHOSPHATE
  10. KISQALI [Concomitant]
     Active Substance: RIBOCICLIB SUCCINATE
  11. VITAMIN D2 [Concomitant]
     Active Substance: ERGOCALCIFEROL

REACTIONS (5)
  - Neutropenia [Recovering/Resolving]
  - Breast cancer female [Unknown]
  - Malignant neoplasm progression [Unknown]
  - White blood cell count decreased [Recovered/Resolved]
  - Infection [Recovered/Resolved]
